FAERS Safety Report 4732573-3 (Version None)
Quarter: 2005Q3

REPORT INFORMATION
  Report Type: 
  Country: None (occurrence: None)
  Receive Date: 20050801
  Receipt Date: 20050801
  Transmission Date: 20060218
  Serious: No
  Sender: FDA-Public Use
  Company Number: None

PATIENT
  Age: 23 Year
  Sex: Male

DRUGS (1)
  1. PENICILLIN VK [Suspect]
     Indication: INFECTION PROPHYLAXIS
     Dosage: 500MG    QID   ORAL
     Route: 048
     Dates: start: 20050708, end: 20050714

REACTIONS (1)
  - DRUG ERUPTION [None]
